FAERS Safety Report 10057026 (Version 2)
Quarter: 2014Q2

REPORT INFORMATION
  Report Type: Spontaneous
  Country: US (occurrence: US)
  Receive Date: 20140403
  Receipt Date: 20140502
  Transmission Date: 20141212
  Serious: Yes (Life-Threatening, Hospitalization)
  Sender: FDA-Public Use
  Company Number: US-B.I. PHARMACEUTICALS,INC./RIDGEFIELD-2014-BI-14541BP

PATIENT
  Age: 66 Year
  Sex: Male
  Weight: 98 kg

DRUGS (11)
  1. PRADAXA [Suspect]
     Indication: ATRIAL FIBRILLATION
     Dosage: 300 MG
     Route: 048
     Dates: start: 201309, end: 20140228
  2. PRADAXA [Suspect]
     Indication: CEREBROVASCULAR ACCIDENT PROPHYLAXIS
  3. LISINOPRIL [Concomitant]
     Indication: BLOOD PRESSURE
     Dosage: 10 MG
     Route: 048
     Dates: start: 20130307
  4. LIPITOR [Concomitant]
     Indication: BLOOD CHOLESTEROL INCREASED
     Dosage: 10 UNK
     Route: 048
  5. CELEBREX [Concomitant]
     Indication: ARTHRITIS
     Dosage: 400 MG
     Route: 048
  6. DILTIAZEM HCL [Concomitant]
     Indication: BLOOD PRESSURE
     Dosage: 120 MG
     Route: 048
     Dates: start: 20140102
  7. HYDROCHLOROTHIAZIDE [Concomitant]
     Indication: BLOOD PRESSURE
     Dosage: 25 MG
     Route: 048
     Dates: start: 20130307
  8. TOPROL XL [Concomitant]
     Indication: HYPERTENSION
     Dosage: 50 MG
     Route: 048
  9. STOOL SOFTNER [Concomitant]
     Dosage: 100 MG
     Route: 065
  10. ASA [Concomitant]
     Dosage: 81 MG
     Route: 065
  11. FIBER COMPLETE [Concomitant]
     Dosage: 2 ANZ
     Route: 065

REACTIONS (6)
  - Atrial fibrillation [Not Recovered/Not Resolved]
  - Haemorrhage [Recovered/Resolved]
  - Splenic haemorrhage [Recovered/Resolved]
  - Chest pain [Recovered/Resolved]
  - Abdominal pain upper [Recovered/Resolved]
  - Splenic injury [Recovered/Resolved]
